FAERS Safety Report 20474048 (Version 1)
Quarter: 2022Q1

REPORT INFORMATION
  Report Type: Spontaneous
  Country: FR (occurrence: FR)
  Receive Date: 20220215
  Receipt Date: 20220215
  Transmission Date: 20220423
  Serious: Yes (Hospitalization)
  Sender: FDA-Public Use
  Company Number: None

PATIENT
  Age: 71 Year
  Sex: Female
  Weight: 51 kg

DRUGS (2)
  1. RALOXIFENE HYDROCHLORIDE [Suspect]
     Active Substance: RALOXIFENE HYDROCHLORIDE
     Indication: Osteoporosis postmenopausal
     Dosage: 1 DOSAGE FORM, DAILY
     Route: 048
     Dates: start: 20110214, end: 20180504
  2. ACTONEL [Suspect]
     Active Substance: RISEDRONATE SODIUM
     Indication: Osteoporosis postmenopausal
     Dosage: NR
     Route: 048

REACTIONS (1)
  - Rectal adenoma [Recovered/Resolved]

NARRATIVE: CASE EVENT DATE: 20190117
